FAERS Safety Report 5551199-5 (Version None)
Quarter: 2007Q4

REPORT INFORMATION
  Report Type: 
  Country: None (occurrence: None)
  Receive Date: 20071210
  Receipt Date: 20071123
  Transmission Date: 20080405
  Serious: Yes (Hospitalization)
  Sender: FDA-Public Use
  Company Number: 8027608

PATIENT
  Age: 21 Year
  Sex: Male

DRUGS (2)
  1. KEPPRA [Suspect]
     Indication: EPILEPSY
     Dosage: 1 G 2/D PO
     Route: 048
     Dates: start: 20061001, end: 20070901
  2. ANTIHYPERTENSIVE DRUGS [Concomitant]

REACTIONS (1)
  - THROMBOCYTOPENIA [None]
